FAERS Safety Report 19034816 (Version 1)
Quarter: 2021Q1

REPORT INFORMATION
  Report Type: Spontaneous
  Country: AR (occurrence: AR)
  Receive Date: 20210320
  Receipt Date: 20210320
  Transmission Date: 20210420
  Serious: Yes (Hospitalization)
  Sender: FDA-Public Use
  Company Number: AR-MICRO LABS LIMITED-ML2021-00808

PATIENT
  Age: 73 Year
  Sex: Female

DRUGS (7)
  1. ISOPROTERENOL HYDROCHLORIDE. [Suspect]
     Active Substance: ISOPROTERENOL HYDROCHLORIDE
     Indication: ARRHYTHMIA
  2. AMIODARONE [Suspect]
     Active Substance: AMIODARONE
     Indication: ARRHYTHMIA
  3. HYDROCHLOROTHIAZIDE. [Concomitant]
     Active Substance: HYDROCHLOROTHIAZIDE
  4. MAGNESIUM [Suspect]
     Active Substance: MAGNESIUM
     Indication: ARRHYTHMIA
     Route: 042
  5. LIDOCAINE. [Suspect]
     Active Substance: LIDOCAINE
     Indication: ARRHYTHMIA
  6. VALSARTAN. [Concomitant]
     Active Substance: VALSARTAN
  7. NEBIVOLOL. [Concomitant]
     Active Substance: NEBIVOLOL

REACTIONS (1)
  - Drug ineffective [Unknown]
